FAERS Safety Report 17811961 (Version 1)
Quarter: 2020Q2

REPORT INFORMATION
  Report Type: Report from Study
  Country: None (occurrence: US)
  Receive Date: 20200521
  Receipt Date: 20200521
  Transmission Date: 20200714
  Serious: Yes (Other)
  Sender: FDA-Public Use
  Company Number: US-INSMED, INC.-US-INS-20-00203

PATIENT
  Sex: Female

DRUGS (4)
  1. ARIKAYCE [Suspect]
     Active Substance: AMIKACIN
     Indication: MYCOBACTERIAL INFECTION
     Route: 055
     Dates: start: 20200124, end: 2020
  2. LAMIRA NEBULIZER SYSTEM [Suspect]
     Active Substance: DEVICE
  3. MOXIFLOXACIN. [Suspect]
     Active Substance: MOXIFLOXACIN
     Indication: PRODUCT USED FOR UNKNOWN INDICATION
  4. ARIKAYCE [Suspect]
     Active Substance: AMIKACIN
     Route: 055
     Dates: start: 2020, end: 202003

REACTIONS (8)
  - Drug intolerance [Unknown]
  - Cough [Recovered/Resolved]
  - Device issue [Unknown]
  - Dysphagia [Recovered/Resolved]
  - Aphonia [Unknown]
  - Throat tightness [Recovered/Resolved]
  - Drug dose omission by device [Unknown]
  - Oropharyngeal pain [Recovering/Resolving]

NARRATIVE: CASE EVENT DATE: 2020
